FAERS Safety Report 8231765-9 (Version None)
Quarter: 2012Q1

REPORT INFORMATION
  Report Type: 
  Country: None (occurrence: None)
  Receive Date: 20120323
  Receipt Date: 20120309
  Transmission Date: 20120608
  Serious: Yes (Other)
  Sender: FDA-Public Use
  Company Number: AU-WATSON-2012-05134

PATIENT
  Age: 25 Year
  Sex: Female

DRUGS (3)
  1. CITALOPRAM HYDROBROMIDE [Suspect]
     Indication: MARITAL PROBLEM
     Route: 048
  2. CANNABIS [Suspect]
     Indication: PRODUCT USED FOR UNKNOWN INDICATION
  3. VENLAFAXINE HYDROCHLORIDE [Suspect]
     Indication: MARITAL PROBLEM
     Route: 048

REACTIONS (6)
  - SUICIDE ATTEMPT [None]
  - AGGRESSION [None]
  - PHYSICAL ASSAULT [None]
  - PERSONALITY CHANGE [None]
  - DEPRESSION [None]
  - AKATHISIA [None]
